FAERS Safety Report 6923685-4 (Version None)
Quarter: 2010Q3

REPORT INFORMATION
  Report Type: 
  Country: None (occurrence: None)
  Receive Date: 20100813
  Receipt Date: 20100808
  Transmission Date: 20110219
  Serious: Yes (Hospitalization)
  Sender: FDA-Public Use
  Company Number: B0668895A

PATIENT
  Age: 42 Year
  Sex: Male
  Weight: 70 kg

DRUGS (2)
  1. AVANDARYL [Suspect]
     Indication: TYPE 2 DIABETES MELLITUS
     Dosage: 4MG PER DAY
     Route: 065
     Dates: end: 20100729
  2. BISOPROLOL [Concomitant]
     Indication: HYPERTENSION
     Dosage: 5MG PER DAY
     Route: 065

REACTIONS (5)
  - BRAIN NEOPLASM [None]
  - CEREBRAL INFARCTION [None]
  - CONVULSION [None]
  - HEADACHE [None]
  - HYPERTENSION [None]
